FAERS Safety Report 7740226-2 (Version None)
Quarter: 2011Q3

REPORT INFORMATION
  Report Type: 
  Country: None (occurrence: None)
  Receive Date: 20110909
  Receipt Date: 20110909
  Transmission Date: 20111222
  Serious: Yes (Other)
  Sender: FDA-Public Use
  Company Number: None

PATIENT
  Sex: Female
  Weight: 72.2 kg

DRUGS (1)
  1. ITRACONAZOLE [Suspect]
     Indication: COCCIDIOIDOMYCOSIS
     Dosage: 200 MG
     Route: 048
     Dates: start: 20110714, end: 20110728

REACTIONS (1)
  - ALOPECIA [None]
